FAERS Safety Report 8564946-5 (Version None)
Quarter: 2012Q3

REPORT INFORMATION
  Report Type: 
  Country: None (occurrence: None)
  Receive Date: 20120803
  Receipt Date: 20120801
  Transmission Date: 20120928
  Serious: No
  Sender: FDA-Public Use
  Company Number: US-PFIZER INC-2012187226

PATIENT
  Sex: Male

DRUGS (8)
  1. LISINOPRIL [Concomitant]
     Dosage: UNK
  2. ASPIRIN [Concomitant]
     Dosage: 81 MG, DAILY
  3. LIPITOR [Concomitant]
     Dosage: UNK
  4. VITAMIN TAB [Concomitant]
     Dosage: UNK
  5. DOXAZOSIN [Concomitant]
     Dosage: UNK
  6. IRON [Concomitant]
     Indication: ANAEMIA
     Dosage: UNK
  7. METOPROLOL [Concomitant]
     Dosage: UNK
  8. IBUPROFEN (ADVIL) [Suspect]
     Indication: HEADACHE
     Dosage: 200 MG, DAILY
     Dates: start: 20120101

REACTIONS (2)
  - DRUG INEFFECTIVE [None]
  - RASH GENERALISED [None]
